FAERS Safety Report 8344447 (Version 6)
Quarter: 2013Q1

REPORT INFORMATION
  Report Type: Spontaneous
  Country: SE (occurrence: SE)
  Receive Date: 20120119
  Receipt Date: 20130207
  Transmission Date: 20140127
  Serious: Yes (Hospitalization, Other)
  Sender: FDA-Public Use
  Company Number: SE-AMGEN-SWESP2012002980

PATIENT
  Age: 73 Year
  Sex: Female

DRUGS (11)
  1. PROLIA [Suspect]
     Indication: OSTEOPOROSIS
     Dosage: UNK
     Dates: start: 20120102, end: 20120102
  2. PROLIA [Suspect]
     Indication: STEROID THERAPY
  3. CORTISONE [Concomitant]
     Indication: SYSTEMIC LUPUS ERYTHEMATOSUS
     Dosage: UNK
  4. CORTISONE [Concomitant]
     Indication: SJOGREN^S SYNDROME
  5. ATACAND [Concomitant]
     Indication: HYPERTENSION
     Dosage: UNK
  6. CITODON [Concomitant]
     Indication: PAIN
     Dosage: UNK UNK, PRN
  7. B12 [Concomitant]
     Dosage: 1 DF, Q2MO
  8. KALCIPOS-D [Concomitant]
  9. EYE Q [Concomitant]
  10. Q10 [Concomitant]
  11. OPTINATE [Concomitant]
     Indication: OSTEOPOROSIS
     Dosage: UNK UNK, QWK

REACTIONS (15)
  - Investigation [Unknown]
  - Deafness [Recovering/Resolving]
  - Thinking abnormal [Recovering/Resolving]
  - Malaise [Unknown]
  - Urinary incontinence [Not Recovered/Not Resolved]
  - Balance disorder [Not Recovered/Not Resolved]
  - Hypoaesthesia [Not Recovered/Not Resolved]
  - Motor dysfunction [Not Recovered/Not Resolved]
  - Paraesthesia [Not Recovered/Not Resolved]
  - Dizziness [Unknown]
  - Amnesia [Unknown]
  - Faecal incontinence [Unknown]
  - Fatigue [Unknown]
  - Tinnitus [Unknown]
  - Pain [Unknown]
